FAERS Safety Report 23764377 (Version 2)
Quarter: 2024Q3

REPORT INFORMATION
  Report Type: Spontaneous
  Country: US (occurrence: US)
  Receive Date: 20240420
  Receipt Date: 20240905
  Transmission Date: 20241016
  Serious: No
  Sender: Haleon PLC
  Company Number: US-HALEON-USCH2024014725

PATIENT

DRUGS (1)
  1. SENSODYNE REPAIR AND PROTECT [Suspect]
     Active Substance: STANNOUS FLUORIDE
     Indication: Product used for unknown indication
     Dosage: UNK ;EXPDATE:20240430

REACTIONS (2)
  - Rash [Unknown]
  - Product complaint [Unknown]
